FAERS Safety Report 6240471-1 (Version None)
Quarter: 2009Q2

REPORT INFORMATION
  Report Type: 
  Country: None (occurrence: None)
  Receive Date: 20090623
  Receipt Date: 20090312
  Transmission Date: 20091009
  Serious: No
  Sender: FDA-Public Use
  Company Number: US-ASTRAZENECA-2009UW06526

PATIENT
  Age: 6 Year
  Sex: Female

DRUGS (2)
  1. PULMICORT RESPULES [Suspect]
     Dosage: 1 MG
     Route: 055
  2. SINGULAIR [Concomitant]

REACTIONS (1)
  - ACNE [None]
